FAERS Safety Report 19601534 (Version 1)
Quarter: 2021Q3

REPORT INFORMATION
  Report Type: Spontaneous
  Country: UY (occurrence: UY)
  Receive Date: 20210722
  Receipt Date: 20210722
  Transmission Date: 20211014
  Serious: Yes (Other)
  Sender: FDA-Public Use
  Company Number: UY-PRINSTON PHARMACEUTICAL INC.-2021PRN00255

PATIENT
  Age: 66 Year
  Sex: Male

DRUGS (1)
  1. POTASSIUM CHLORIDE. [Suspect]
     Active Substance: POTASSIUM CHLORIDE
     Indication: POSTOPERATIVE ANALGESIA
     Dosage: 100 ML INFUSION THROUGH A THORACIC EPIDURAL CATHETER, 48 HOURS AFTER SURGERY
     Route: 008

REACTIONS (2)
  - Paralysis [Recovered/Resolved]
  - Accidental exposure to product [Recovered/Resolved]
